FAERS Safety Report 7183346-6 (Version None)
Quarter: 2010Q4

REPORT INFORMATION
  Report Type: 
  Country: None (occurrence: None)
  Receive Date: 20101222
  Receipt Date: 20101118
  Transmission Date: 20110411
  Serious: No
  Sender: FDA-Public Use
  Company Number: US-MYLANLABS-2010S1021258

PATIENT
  Age: 48 Year
  Sex: Female

DRUGS (1)
  1. NIFEDIPINE [Suspect]
     Route: 048
     Dates: start: 20100801

REACTIONS (1)
  - RASH [None]
